FAERS Safety Report 24830874 (Version 1)
Quarter: 2025Q1

REPORT INFORMATION
  Report Type: Spontaneous
  Country: US (occurrence: None)
  Receive Date: 20250109
  Receipt Date: 20250109
  Transmission Date: 20250409
  Serious: Yes (Disabling, Other)
  Sender: FDA-CTU
  Company Number: None

PATIENT
  Age: 4 Year
  Sex: Female
  Weight: 18 kg

DRUGS (2)
  1. SMOOTHLAX [Suspect]
     Active Substance: POLYETHYLENE GLYCOL 3350
     Indication: Constipation
     Dosage: 4 TIMES A DAY ORAL
     Route: 048
     Dates: start: 20250109, end: 20250109
  2. SmoothLax generic miralax [Concomitant]

REACTIONS (3)
  - Pain [None]
  - Vomiting [None]
  - Crying [None]

NARRATIVE: CASE EVENT DATE: 20250109
